FAERS Safety Report 6735707-4 (Version None)
Quarter: 2010Q2

REPORT INFORMATION
  Report Type: 
  Country: None (occurrence: None)
  Receive Date: 20100521
  Receipt Date: 20100510
  Transmission Date: 20101027
  Serious: Yes (Hospitalization)
  Sender: FDA-Public Use
  Company Number: BR-ABBOTT-10P-020-0624598-00

PATIENT
  Sex: Female
  Weight: 86 kg

DRUGS (7)
  1. HUMIRA [Suspect]
     Indication: RHEUMATOID ARTHRITIS
     Route: 058
     Dates: start: 20081101, end: 20090501
  2. CALCIUM 500MG + VITAMIN D [Concomitant]
     Indication: OSTEOPENIA
     Route: 048
     Dates: start: 20050101
  3. PREDNISONE [Concomitant]
     Indication: PAIN
     Route: 048
     Dates: start: 20050101
  4. PREDNISONE [Concomitant]
     Indication: RHEUMATOID ARTHRITIS
  5. METHOTREXATE [Concomitant]
     Indication: RHEUMATOID ARTHRITIS
     Route: 048
     Dates: start: 20070101
  6. FOLIC ACID [Concomitant]
     Indication: BLOOD DISORDER
     Route: 048
     Dates: start: 20070101
  7. FOLIC ACID [Concomitant]
     Indication: PROPHYLAXIS

REACTIONS (12)
  - APPLICATION SITE ERYTHEMA [None]
  - APPLICATION SITE PAIN [None]
  - BLOOD CHOLESTEROL INCREASED [None]
  - FACE OEDEMA [None]
  - LOCALISED OEDEMA [None]
  - PAIN IN EXTREMITY [None]
  - RASH [None]
  - RASH ERYTHEMATOUS [None]
  - RASH PUSTULAR [None]
  - SKIN BURNING SENSATION [None]
  - SKIN DISCOLOURATION [None]
  - STEVENS-JOHNSON SYNDROME [None]
